FAERS Safety Report 6488808-2 (Version None)
Quarter: 2009Q4

REPORT INFORMATION
  Report Type: 
  Country: None (occurrence: None)
  Receive Date: 20091210
  Receipt Date: 20091203
  Transmission Date: 20100525
  Serious: Yes (Other)
  Sender: FDA-Public Use
  Company Number: US-PFIZER INC-2006034117

PATIENT
  Sex: Female
  Weight: 59 kg

DRUGS (10)
  1. PROVERA [Suspect]
     Indication: HORMONE REPLACEMENT THERAPY
     Dosage: 10 MG, UNK
     Route: 048
     Dates: start: 19970908, end: 19971201
  2. PROVERA [Suspect]
     Dosage: 10 MG, UNK
     Dates: start: 19981122, end: 19981225
  3. MEDROXYPROGESTERONE AND MEDROXYPROGESTERONE ACETATE [Suspect]
     Indication: HORMONE REPLACEMENT THERAPY
     Dosage: UNK
     Route: 048
     Dates: start: 19971223, end: 19981201
  4. PREMARIN [Suspect]
     Indication: HORMONE REPLACEMENT THERAPY
     Dosage: 0.625 MG, UNK
     Dates: start: 19970908, end: 19971201
  5. ESTRACE [Suspect]
     Indication: HORMONE REPLACEMENT THERAPY
     Dosage: 1 MG, UNK
     Dates: start: 19981122, end: 19981225
  6. PREMPRO [Suspect]
     Indication: HORMONE REPLACEMENT THERAPY
     Dosage: 0.625/5MG
     Dates: start: 19981217
  7. PREMPRO [Suspect]
     Dosage: 0.625/5MG
     Dates: start: 19990101, end: 20021205
  8. ESTROGENS [Suspect]
     Indication: HORMONE REPLACEMENT THERAPY
  9. ESTRADIOL [Suspect]
     Indication: HORMONE REPLACEMENT THERAPY
     Dosage: 1 MG, UNK
     Dates: start: 19971218, end: 19981201
  10. ESTRACE [Suspect]
     Dosage: UNK
     Dates: start: 20020205

REACTIONS (1)
  - BREAST CANCER [None]
